FAERS Safety Report 7434920-0 (Version None)
Quarter: 2011Q2

REPORT INFORMATION
  Report Type: 
  Country: None (occurrence: None)
  Receive Date: 20110415
  Receipt Date: 20110405
  Transmission Date: 20111010
  Serious: Yes (Death, Congenital Anomaly, Other)
  Sender: FDA-Public Use
  Company Number: 1000018765

PATIENT

DRUGS (3)
  1. ESCITALOPRAM [Suspect]
     Dosage: TRANSPLACENTAL
     Route: 064
  2. LIDOCAINE [Suspect]
     Dosage: 0.25 DOSAGE FORM (0.5 DOSAGE FORMS,1 I N2 D),TRANSPLACENTAL
     Route: 064
  3. ATARAX [Suspect]
     Dosage: 3.5714 MG (25 MG,1 IN 1 WK),TRANSPLACENTAL
     Route: 064

REACTIONS (6)
  - SPINA BIFIDA [None]
  - MATERNAL DRUGS AFFECTING FOETUS [None]
  - FOETAL MALFORMATION [None]
  - ARNOLD-CHIARI MALFORMATION [None]
  - TALIPES [None]
  - ABORTION INDUCED [None]
